FAERS Safety Report 21128198 (Version 2)
Quarter: 2022Q3

REPORT INFORMATION
  Report Type: Spontaneous
  Country: CN (occurrence: CN)
  Receive Date: 20220725
  Receipt Date: 20220908
  Transmission Date: 20221027
  Serious: Yes (Hospitalization)
  Sender: FDA-Public Use
  Company Number: CN-ZAILAB-ZAI202200772

PATIENT
  Age: 43 Year
  Sex: Male
  Weight: 58 kg

DRUGS (2)
  1. QINLOCK [Suspect]
     Active Substance: RIPRETINIB
     Indication: Gastrointestinal stromal tumour
     Dosage: 150 MG, DAILY
     Route: 048
     Dates: start: 20211124
  2. QINLOCK [Suspect]
     Active Substance: RIPRETINIB
     Dosage: 150 MG, DAILY
     Route: 048
     Dates: start: 202201, end: 202203

REACTIONS (4)
  - Gastrointestinal haemorrhage [Recovered/Resolved]
  - Skin hypertrophy [Recovered/Resolved]
  - Hypoaesthesia [Recovered/Resolved]
  - Pain in extremity [Recovered/Resolved]

NARRATIVE: CASE EVENT DATE: 20211127
